FAERS Safety Report 6845118-9 (Version None)
Quarter: 2010Q3

REPORT INFORMATION
  Report Type: 
  Country: None (occurrence: None)
  Receive Date: 20100715
  Receipt Date: 20070814
  Transmission Date: 20110219
  Serious: No
  Sender: FDA-Public Use
  Company Number: US-PFIZER INC-2007067686

PATIENT
  Sex: Female
  Weight: 79.5 kg

DRUGS (2)
  1. CHANTIX [Suspect]
     Indication: SMOKING CESSATION THERAPY
     Dates: start: 20070714
  2. PREMPRO [Concomitant]

REACTIONS (2)
  - FATIGUE [None]
  - SLEEP DISORDER [None]
